FAERS Safety Report 7820758-9 (Version None)
Quarter: 2011Q4

REPORT INFORMATION
  Report Type: 
  Country: None (occurrence: None)
  Receive Date: 20111018
  Receipt Date: 20111013
  Transmission Date: 20120403
  Serious: Yes (Other)
  Sender: FDA-Public Use
  Company Number: US-BRISTOL-MYERS SQUIBB COMPANY-16159501

PATIENT
  Age: 44 Year
  Sex: Female
  Weight: 54 kg

DRUGS (2)
  1. PRAVASTATIN [Concomitant]
  2. WARFARIN SODIUM [Suspect]
     Indication: THROMBOSIS
     Dosage: INTERRUPTED IN JUL2011 DECREASED TO 2MG

REACTIONS (7)
  - CHRONIC OBSTRUCTIVE PULMONARY DISEASE [None]
  - NAUSEA [None]
  - TREATMENT NONCOMPLIANCE [None]
  - DRUG INEFFECTIVE [None]
  - GAIT DISTURBANCE [None]
  - PERIPHERAL ARTERIAL OCCLUSIVE DISEASE [None]
  - WEIGHT INCREASED [None]
